FAERS Safety Report 6895946-9 (Version None)
Quarter: 2010Q3

REPORT INFORMATION
  Report Type: 
  Country: None (occurrence: None)
  Receive Date: 20100802
  Receipt Date: 20090402
  Transmission Date: 20110219
  Serious: Yes (Death, Other)
  Sender: FDA-Public Use
  Company Number: US-BAYER-200812445NA

PATIENT
  Age: 69 Year
  Sex: Male

DRUGS (25)
  1. MAGNEVIST [Suspect]
     Indication: NUCLEAR MAGNETIC RESONANCE IMAGING
     Route: 042
     Dates: start: 20050609, end: 20050609
  2. MAGNEVIST [Suspect]
     Route: 042
     Dates: start: 20050610, end: 20050610
  3. MAGNEVIST [Suspect]
     Route: 042
     Dates: start: 20050909, end: 20050909
  4. MAGNEVIST [Suspect]
     Route: 042
     Dates: start: 20050914, end: 20050914
  5. OMNISCAN [Suspect]
     Indication: NUCLEAR MAGNETIC RESONANCE IMAGING
     Dosage: AS USED: 20 ML
     Dates: start: 20031130, end: 20031130
  6. OMNISCAN [Suspect]
     Dates: start: 20050118, end: 20050118
  7. OMNISCAN [Suspect]
     Dates: start: 20050301, end: 20050301
  8. PROHANCE [Suspect]
  9. UNKNOWN GBCA [Suspect]
     Dates: start: 20060301, end: 20060301
  10. UNKNOWN GBCA [Suspect]
     Dates: start: 20060327, end: 20060327
  11. UNKNOWN GBCA [Suspect]
     Dates: start: 20060331, end: 20060331
  12. UNKNOWN GBCA [Suspect]
     Dates: start: 20060329, end: 20060329
  13. PROCRIT [Concomitant]
  14. IRON B-12 [Concomitant]
  15. AVAPRO [Concomitant]
  16. TOPROL-XL [Concomitant]
  17. PREDNISONE [Concomitant]
  18. MELPHALAN [Concomitant]
  19. THALIDOMIDE [Concomitant]
  20. RENAGEL [Concomitant]
     Dosage: TOTAL DAILY DOSE: 4800 MG  UNIT DOSE: 800 MG
  21. COUMADIN [Concomitant]
     Dosage: 3 MG, M,W,F AND 2 MG OTHER DAYS.
  22. LIPITOR [Concomitant]
  23. RENAX MULTIVITAMIN [Concomitant]
     Dosage: AS USED: 2.5 MG
  24. ALLOPURINOL [Concomitant]
     Dosage: AS USED: 100 MG
  25. OXYCONTIN [Concomitant]
     Dosage: AS USED: 20 MG

REACTIONS (17)
  - ERYTHEMA [None]
  - FIBROSIS [None]
  - HYPERKERATOSIS [None]
  - HYPOAESTHESIA [None]
  - INJURY [None]
  - JOINT STIFFNESS [None]
  - JOINT SWELLING [None]
  - NEPHROGENIC SYSTEMIC FIBROSIS [None]
  - OEDEMA PERIPHERAL [None]
  - PAIN IN EXTREMITY [None]
  - SCLERODERMA [None]
  - SKIN DISORDER [None]
  - SKIN FIBROSIS [None]
  - SKIN INDURATION [None]
  - SKIN PLAQUE [None]
  - SKIN TIGHTNESS [None]
  - XERODERMA [None]
